FAERS Safety Report 12174761 (Version 1)
Quarter: 2016Q1

REPORT INFORMATION
  Report Type: Spontaneous
  Country: US (occurrence: US)
  Receive Date: 20160314
  Receipt Date: 20160314
  Transmission Date: 20160526
  Serious: Yes (Hospitalization, Disabling, Other)
  Sender: FDA-Public Use
  Company Number: US-HOSPIRA-3203337

PATIENT
  Age: 51 Year
  Sex: Female

DRUGS (1)
  1. HEPARIN SODIUM. [Suspect]
     Active Substance: HEPARIN SODIUM
     Indication: THROMBOSIS
     Dosage: CONTINUOUS
     Route: 042
     Dates: start: 20150828, end: 20150830

REACTIONS (8)
  - Pain in extremity [Not Recovered/Not Resolved]
  - Hypokinesia [Not Recovered/Not Resolved]
  - Hypersensitivity [Recovered/Resolved]
  - Peripheral swelling [Not Recovered/Not Resolved]
  - Thrombosis [Recovering/Resolving]
  - Impaired healing [Not Recovered/Not Resolved]
  - Hypoaesthesia [Unknown]
  - Platelet count decreased [Unknown]

NARRATIVE: CASE EVENT DATE: 20150828
